FAERS Safety Report 4852929-8 (Version None)
Quarter: 2005Q4

REPORT INFORMATION
  Report Type: 
  Country: None (occurrence: None)
  Receive Date: 20051212
  Receipt Date: 20051129
  Transmission Date: 20060501
  Serious: Yes (Hospitalization)
  Sender: FDA-Public Use
  Company Number: 2005162866

PATIENT
  Age: 83 Year
  Sex: Female

DRUGS (5)
  1. NORVASC [Suspect]
     Indication: HYPERTENSION
     Dosage: 5 MG, ORAL
     Route: 048
     Dates: start: 20050808, end: 20051008
  2. OLMETEC (OLMESARTAN) [Concomitant]
  3. PRAVASTATIN [Concomitant]
  4. PLATIBIT (ALFACALCIDOL) [Concomitant]
  5. SENNOSIDE A+B CALCIUM (SENNOSIDE A+B CALCIUM) [Concomitant]

REACTIONS (3)
  - AORTIC VALVE STENOSIS [None]
  - ATRIOVENTRICULAR BLOCK SECOND DEGREE [None]
  - LOSS OF CONSCIOUSNESS [None]
